FAERS Safety Report 24168712 (Version 2)
Quarter: 2024Q3

REPORT INFORMATION
  Report Type: Spontaneous
  Country: ID (occurrence: ID)
  Receive Date: 20240802
  Receipt Date: 20240819
  Transmission Date: 20241016
  Serious: Yes (Hospitalization, Other)
  Sender: ELI LILLY AND CO
  Company Number: ID-ELI_LILLY_AND_COMPANY-ID202407013592

PATIENT
  Age: 68 Year
  Sex: Female
  Weight: 33 kg

DRUGS (2)
  1. RAMUCIRUMAB [Suspect]
     Active Substance: RAMUCIRUMAB
     Indication: Non-small cell lung cancer
     Dosage: UNK UNK, UNKNOWN
     Route: 065
     Dates: start: 20240425
  2. PEMBROLIZUMAB [Concomitant]
     Active Substance: PEMBROLIZUMAB
     Indication: Non-small cell lung cancer
     Dosage: UNK
     Dates: start: 20240425

REACTIONS (3)
  - Pulmonary venous thrombosis [Not Recovered/Not Resolved]
  - Coronary artery embolism [Not Recovered/Not Resolved]
  - Cerebral artery embolism [Not Recovered/Not Resolved]
